FAERS Safety Report 6763242-6 (Version None)
Quarter: 2010Q2

REPORT INFORMATION
  Report Type: 
  Country: None (occurrence: None)
  Receive Date: 20100608
  Receipt Date: 20100608
  Transmission Date: 20101027
  Serious: Yes (Disabling)
  Sender: FDA-Public Use
  Company Number: None

PATIENT
  Sex: Female
  Weight: 49.8957 kg

DRUGS (2)
  1. CIPROFLOXACIN HCL [Suspect]
     Indication: CYSTITIS
     Dosage: ONE TABLET EVERY 12 HOURS PO
     Route: 048
     Dates: start: 20100507, end: 20100510
  2. PREDNISOLONE MED PACK [Concomitant]

REACTIONS (6)
  - BURNING SENSATION [None]
  - MUSCLE DISORDER [None]
  - PRESYNCOPE [None]
  - PRURITUS [None]
  - PYREXIA [None]
  - RASH [None]
